FAERS Safety Report 13375123 (Version 1)
Quarter: 2017Q1

REPORT INFORMATION
  Report Type: Report from Study
  Country: None (occurrence: DK)
  Receive Date: 20170327
  Receipt Date: 20170327
  Transmission Date: 20170429
  Serious: Yes (Hospitalization)
  Sender: FDA-Public Use
  Company Number: DK-ABBVIE-17P-044-1908244-00

PATIENT
  Age: 69 Year
  Sex: Female

DRUGS (36)
  1. VENETOCLAX [Suspect]
     Active Substance: VENETOCLAX
     Indication: CHRONIC LYMPHOCYTIC LEUKAEMIA
     Route: 048
     Dates: start: 20161124, end: 20161214
  2. ALLOPURINOL. [Concomitant]
     Active Substance: ALLOPURINOL
     Indication: TUMOUR LYSIS SYNDROME
     Route: 048
     Dates: start: 20161114
  3. NORMAL SALINE SOLUTION (0.9% SODIUM CHLORIDE) [Concomitant]
     Route: 042
     Dates: start: 20170224, end: 20170224
  4. ISOTON GLUCOSE [Concomitant]
     Route: 042
     Dates: start: 20161228, end: 20161228
  5. GLUCOSE [Concomitant]
     Active Substance: DEXTROSE
     Indication: PROPHYLAXIS
  6. VENETOCLAX [Suspect]
     Active Substance: VENETOCLAX
     Route: 048
     Dates: start: 20161229, end: 20170104
  7. NORMAL SALINE SOLUTION (0.9% SODIUM CHLORIDE) [Concomitant]
     Indication: PYREXIA
     Route: 042
     Dates: start: 20161221, end: 20161222
  8. NORMAL SALINE SOLUTION (0.9% SODIUM CHLORIDE) [Concomitant]
     Indication: PROPHYLAXIS
     Route: 042
     Dates: start: 20161228, end: 20161229
  9. NORMAL SALINE SOLUTION (0.9% SODIUM CHLORIDE) [Concomitant]
     Dosage: ONE
     Route: 042
     Dates: start: 20161125, end: 20161125
  10. BUDESONID [Concomitant]
     Active Substance: BUDESONIDE
     Indication: ASTHMA
     Dosage: 200 MICRO
     Route: 055
     Dates: start: 20160202
  11. PARACETAMOL [Concomitant]
     Active Substance: ACETAMINOPHEN
     Indication: OEDEMA
     Route: 048
     Dates: start: 20161128
  12. ZOPLICONE [Concomitant]
     Active Substance: ZOPICLONE
     Indication: INSOMNIA
     Route: 048
     Dates: start: 20161129
  13. VENETOCLAX [Suspect]
     Active Substance: VENETOCLAX
     Route: 048
     Dates: start: 20161215, end: 20161221
  14. VENETOCLAX [Suspect]
     Active Substance: VENETOCLAX
     Route: 048
     Dates: start: 20161222, end: 20161228
  15. ISOTON GLUCOSE [Concomitant]
     Indication: PROPHYLAXIS
     Route: 042
     Dates: start: 20161214, end: 20161214
  16. ISOTON GLUCOSE [Concomitant]
     Indication: FLUID REPLACEMENT
     Route: 042
     Dates: start: 20161221, end: 20161222
  17. ACICLOVIR [Concomitant]
     Active Substance: ACYCLOVIR
     Indication: PROPHYLAXIS
     Route: 048
     Dates: start: 20120107
  18. ONDANSETRON [Concomitant]
     Active Substance: ONDANSETRON
     Indication: NAUSEA
     Route: 048
     Dates: start: 20161124
  19. ALLOPURINOL. [Concomitant]
     Active Substance: ALLOPURINOL
     Indication: PROPHYLAXIS
  20. NORMAL SALINE SOLUTION (0.9% SODIUM CHLORIDE) [Concomitant]
     Indication: FLUID REPLACEMENT
     Route: 042
     Dates: start: 20170104, end: 20170105
  21. ACICLOVIR [Concomitant]
     Active Substance: ACYCLOVIR
     Indication: HERPES VIRUS INFECTION
  22. FOFINSYRE [Concomitant]
     Indication: HAEMOLYSIS
     Route: 048
     Dates: start: 20170123
  23. VENETOCLAX [Suspect]
     Active Substance: VENETOCLAX
     Route: 048
     Dates: start: 20170105, end: 20170127
  24. NORMAL SALINE SOLUTION (0.9% SODIUM CHLORIDE) [Concomitant]
     Indication: BLOOD LACTATE DEHYDROGENASE INCREASED
     Route: 042
     Dates: start: 20161207, end: 20161208
  25. TERBUTALIN [Concomitant]
     Active Substance: TERBUTALINE
     Indication: ASTHMA
     Route: 055
     Dates: start: 20160606
  26. NORMAL SALINE SOLUTION (0.9% SODIUM CHLORIDE) [Concomitant]
     Indication: ASPARTATE AMINOTRANSFERASE
     Route: 042
     Dates: start: 20161214, end: 20161216
  27. ISOTON GLUCOSE [Concomitant]
     Indication: TUMOUR LYSIS SYNDROME
     Route: 042
     Dates: start: 20161123, end: 20161123
  28. GLUCOSE [Concomitant]
     Active Substance: DEXTROSE
     Indication: TUMOUR LYSIS SYNDROME
     Route: 042
     Dates: start: 20161207, end: 20161207
  29. CALCIUM WITH D-VITAMIN [Concomitant]
     Indication: OSTEOPOROSIS PROPHYLAXIS
     Dosage: 400 + 19 MG+ MICRO.
     Route: 048
     Dates: start: 20150731
  30. TERBUTALIN [Concomitant]
     Active Substance: TERBUTALINE
     Indication: ASTHMA
  31. TRAMADOL. [Concomitant]
     Active Substance: TRAMADOL
     Indication: OEDEMA
  32. PARACETAMOL [Concomitant]
     Active Substance: ACETAMINOPHEN
     Indication: PAIN
  33. PREDNISOLONE. [Concomitant]
     Active Substance: PREDNISOLONE
     Indication: HAEMOLYSIS
     Route: 048
     Dates: start: 20170214
  34. NORMAL SALINE SOLUTION (0.9% SODIUM CHLORIDE) [Concomitant]
     Indication: TUMOUR LYSIS SYNDROME
     Route: 042
     Dates: start: 20161123, end: 20161124
  35. GLUCOSE [Concomitant]
     Active Substance: DEXTROSE
     Indication: FLUID REPLACEMENT
  36. TRAMADOL. [Concomitant]
     Active Substance: TRAMADOL
     Indication: PAIN
     Route: 048
     Dates: start: 20161128

REACTIONS (1)
  - Aplasia pure red cell [Not Recovered/Not Resolved]

NARRATIVE: CASE EVENT DATE: 20170301
